FAERS Safety Report 10157434 (Version 2)
Quarter: 2015Q1

REPORT INFORMATION
  Report Type: Spontaneous
  Country: US (occurrence: US)
  Receive Date: 20140507
  Receipt Date: 20150209
  Transmission Date: 20150720
  Serious: Yes (Other)
  Sender: FDA-Public Use
  Company Number: US-JNJFOC-20140417207

PATIENT

DRUGS (5)
  1. FOSAPREPITANT [Suspect]
     Active Substance: FOSAPREPITANT
     Indication: PROPHYLAXIS OF NAUSEA AND VOMITING
     Dosage: ADMINISTERED OVER 20 TO 30 MINUTES AT A CONCENTRATIONOF 1 MG/ML.
     Route: 042
  2. DOXORUBICIN [Suspect]
     Active Substance: DOXORUBICIN
     Indication: BREAST CANCER
     Route: 042
  3. CORTICOSTEROID (UNSPECIFIED) [Concomitant]
     Route: 065
  4. APREPITANT. [Suspect]
     Active Substance: APREPITANT
     Indication: PROPHYLAXIS OF NAUSEA AND VOMITING
     Route: 048
  5. CYCLOPHOSPHAMIDE. [Suspect]
     Active Substance: CYCLOPHOSPHAMIDE
     Indication: BREAST CANCER
     Route: 065

REACTIONS (3)
  - Infusion site erythema [Unknown]
  - Vein disorder [Unknown]
  - Extravasation [Unknown]
